FAERS Safety Report 7219462-X (Version None)
Quarter: 2011Q1

REPORT INFORMATION
  Report Type: 
  Country: None (occurrence: None)
  Receive Date: 20110111
  Receipt Date: 20101231
  Transmission Date: 20110831
  Serious: Yes (Hospitalization)
  Sender: FDA-Public Use
  Company Number: GR-JNJFOC-20101208787

PATIENT

DRUGS (4)
  1. LENALIDOMIDE [Suspect]
     Indication: MULTIPLE MYELOMA
     Route: 065
  2. DEXAMETHASONE [Suspect]
     Indication: MULTIPLE MYELOMA
     Route: 065
  3. CYCLOPHOSPHAMIDE [Suspect]
     Indication: MULTIPLE MYELOMA
     Route: 065
  4. DOXIL [Suspect]
     Indication: MULTIPLE MYELOMA
     Route: 042

REACTIONS (1)
  - ANGINA PECTORIS [None]
